FAERS Safety Report 16250312 (Version 4)
Quarter: 2019Q3

REPORT INFORMATION
  Report Type: Spontaneous
  Country: IT (occurrence: IT)
  Receive Date: 20190429
  Receipt Date: 20190822
  Transmission Date: 20191004
  Serious: Yes (Death)
  Sender: FDA-Public Use
  Company Number: IT-PFIZER INC-2019178688

PATIENT
  Age: 33 Year
  Sex: Female

DRUGS (5)
  1. FENTANYL CITRATE. [Suspect]
     Active Substance: FENTANYL CITRATE
     Indication: DELIRIUM
     Dosage: UNK
     Route: 065
  2. MORPHINE [Suspect]
     Active Substance: MORPHINE
     Indication: DELIRIUM
     Dosage: UNK
     Route: 065
  3. LAMOTRIGINE. [Concomitant]
     Active Substance: LAMOTRIGINE
     Indication: POST-TRAUMATIC EPILEPSY
     Dosage: 100 MG, UNK
     Route: 065
  4. TOPIRAMATE. [Concomitant]
     Active Substance: TOPIRAMATE
     Indication: POST-TRAUMATIC EPILEPSY
     Dosage: 100 MG, UNK
     Route: 065
  5. HALOPERIDOL. [Suspect]
     Active Substance: HALOPERIDOL
     Indication: DELIRIUM
     Dosage: 2 MG, 2X/DAY (ADMINISTERED AN ADDITIONAL DOSE OF 2MG OF HALOPERIDOL ON THE NIGHT OF HER DEATH)
     Route: 065

REACTIONS (2)
  - Drug ineffective [Fatal]
  - Completed suicide [Fatal]
